FAERS Safety Report 4916704-8 (Version None)
Quarter: 2006Q1

REPORT INFORMATION
  Report Type: 
  Country: None (occurrence: None)
  Receive Date: 20060220
  Receipt Date: 20060127
  Transmission Date: 20060701
  Serious: Yes (Hospitalization)
  Sender: FDA-Public Use
  Company Number: 2006UW01494

PATIENT
  Age: 60 Year
  Sex: Male

DRUGS (4)
  1. IRESSA [Suspect]
     Indication: SQUAMOUS CELL CARCINOMA
     Route: 048
     Dates: start: 20050923, end: 20060107
  2. DOCETAXEL [Suspect]
     Indication: SQUAMOUS CELL CARCINOMA
     Dosage: 35 MG/M2 IV OVER 30-60 MIN ON DAY 1, 8, 15
     Dates: start: 20050923, end: 20060106
  3. DURAGESIC-100 [Concomitant]
  4. LORTAB [Concomitant]

REACTIONS (7)
  - ABDOMINAL INFECTION [None]
  - CONSTIPATION [None]
  - DUODENAL PERFORATION [None]
  - DUODENAL ULCER PERFORATION [None]
  - GASTROINTESTINAL PERFORATION [None]
  - INFECTION [None]
  - THERAPY NON-RESPONDER [None]
